FAERS Safety Report 7708327-2 (Version None)
Quarter: 2011Q3

REPORT INFORMATION
  Report Type: 
  Country: None (occurrence: None)
  Receive Date: 20110825
  Receipt Date: 20110819
  Transmission Date: 20111222
  Serious: No
  Sender: FDA-Public Use
  Company Number: US-BIOGENIDEC-2011BI031848

PATIENT
  Sex: Male

DRUGS (1)
  1. AVONEX [Suspect]
     Indication: MULTIPLE SCLEROSIS
     Route: 030
     Dates: start: 20070716

REACTIONS (5)
  - MUSCULOSKELETAL STIFFNESS [None]
  - STRESS [None]
  - INFLUENZA LIKE ILLNESS [None]
  - URINARY INCONTINENCE [None]
  - GAIT DISTURBANCE [None]
